FAERS Safety Report 4419655-0 (Version None)
Quarter: 2004Q3

REPORT INFORMATION
  Report Type: 
  Country: None (occurrence: None)
  Receive Date: 20040809
  Receipt Date: 20040303
  Transmission Date: 20050211
  Serious: Yes (Other)
  Sender: FDA-Public Use
  Company Number: US-GLAXOSMITHKLINE-A0501151A

PATIENT
  Age: 48 Year
  Sex: Female
  Weight: 99.1 kg

DRUGS (2)
  1. PAROXETINE HYDROCHLORIDE [Suspect]
     Dosage: 20MG SEE DOSAGE TEXT
     Route: 048
  2. FLUOXETINE [Suspect]
     Route: 048

REACTIONS (8)
  - APHASIA [None]
  - BLINDNESS [None]
  - BLOOD PRESSURE INCREASED [None]
  - CEREBROVASCULAR ACCIDENT [None]
  - HEADACHE [None]
  - MEDICATION ERROR [None]
  - PARALYSIS [None]
  - TRANSIENT ISCHAEMIC ATTACK [None]
